FAERS Safety Report 21186024 (Version 1)
Quarter: 2022Q3

REPORT INFORMATION
  Report Type: Spontaneous
  Country: US (occurrence: None)
  Receive Date: 20220808
  Receipt Date: 20220808
  Transmission Date: 20221027
  Serious: No
  Sender: FDA-Public Use
  Company Number: None

PATIENT
  Age: 72 Year
  Sex: Male

DRUGS (5)
  1. CABOMETYX [Suspect]
     Active Substance: CABOZANTINIB S-MALATE
     Indication: Adrenal neoplasm
     Dosage: FREQUENCY : DAILY;?
     Route: 048
     Dates: start: 20220808, end: 20220808
  2. IMODIUM [Concomitant]
     Active Substance: LOPERAMIDE HYDROCHLORIDE
  3. ACETAMINOPHEN [Concomitant]
     Active Substance: ACETAMINOPHEN
  4. ASPIRIN [Concomitant]
     Active Substance: ASPIRIN
  5. SILDENAFIL [Concomitant]
     Active Substance: SILDENAFIL

REACTIONS (5)
  - Skin fissures [None]
  - Gait disturbance [None]
  - Pain in extremity [None]
  - Therapy interrupted [None]
  - Pain in extremity [None]

NARRATIVE: CASE EVENT DATE: 20200808
